FAERS Safety Report 12893524 (Version 3)
Quarter: 2016Q4

REPORT INFORMATION
  Report Type: Spontaneous
  Country: GB (occurrence: GB)
  Receive Date: 20161028
  Receipt Date: 20161211
  Transmission Date: 20170207
  Serious: Yes (Hospitalization)
  Sender: FDA-Public Use
  Company Number: GB-SA-2016SA194160

PATIENT
  Sex: Male

DRUGS (2)
  1. PAMIDRONATE [Concomitant]
     Active Substance: PAMIDRONATE DISODIUM
     Dates: start: 20161129, end: 20161201
  2. MYOZYME [Suspect]
     Active Substance: ALGLUCOSIDASE ALFA
     Route: 041

REACTIONS (3)
  - Respiratory tract infection [Unknown]
  - Pyrexia [Unknown]
  - Oxygen saturation decreased [Unknown]
